FAERS Safety Report 20826538 (Version 1)
Quarter: 2022Q2

REPORT INFORMATION
  Report Type: Spontaneous
  Country: GB (occurrence: GB)
  Receive Date: 20220513
  Receipt Date: 20220513
  Transmission Date: 20220720
  Serious: Yes (Other)
  Sender: FDA-Public Use
  Company Number: GB-MHRA-MED-202205052003170090-8KGFV

PATIENT
  Age: 44 Year
  Sex: Female
  Weight: 145 kg

DRUGS (2)
  1. CIPROFLOXACIN [Suspect]
     Active Substance: CIPROFLOXACIN
     Indication: Cholecystitis infective
     Dosage: 500 MG, BID
     Dates: start: 20220426, end: 20220428
  2. METRONIDAZOLE [Concomitant]
     Active Substance: METRONIDAZOLE
     Indication: Cholecystitis infective
     Dosage: UNK
     Dates: start: 20220427, end: 20220504

REACTIONS (12)
  - Dizziness [Recovered/Resolved with Sequelae]
  - Muscular weakness [Recovering/Resolving]
  - Muscle spasms [Recovered/Resolved]
  - Visual impairment [Recovered/Resolved with Sequelae]
  - Vitreous floaters [Not Recovered/Not Resolved]
  - Fatigue [Recovering/Resolving]
  - Confusional state [Recovered/Resolved]
  - Nightmare [Recovered/Resolved]
  - Palpitations [Recovered/Resolved]
  - Dyspnoea [Recovered/Resolved]
  - Paraesthesia [Recovered/Resolved]
  - Mental impairment [Recovered/Resolved]

NARRATIVE: CASE EVENT DATE: 20220426
